FAERS Safety Report 14099062 (Version 5)
Quarter: 2018Q2

REPORT INFORMATION
  Report Type: Spontaneous
  Country: IT (occurrence: IT)
  Receive Date: 20171017
  Receipt Date: 20180403
  Transmission Date: 20180711
  Serious: Yes (Other)
  Sender: FDA-Public Use
  Company Number: IT-PFIZER INC-2017437871

PATIENT
  Age: 79 Year
  Sex: Male

DRUGS (3)
  1. GEFITINIB. [Interacting]
     Active Substance: GEFITINIB
     Dosage: 250 MG, DAILY
     Route: 048
     Dates: start: 201606
  2. AMIODARONE HCL [Suspect]
     Active Substance: AMIODARONE HYDROCHLORIDE
     Indication: ATRIAL FIBRILLATION
     Dosage: 400 MG, DAILY
     Route: 048
  3. AMIODARONE HCL [Interacting]
     Active Substance: AMIODARONE HYDROCHLORIDE
     Dosage: UNK
     Route: 065

REACTIONS (8)
  - Potentiating drug interaction [Unknown]
  - Alanine aminotransferase increased [Unknown]
  - Erythema [Unknown]
  - Rash [Unknown]
  - Drug interaction [Unknown]
  - Drug-induced liver injury [Unknown]
  - Gamma-glutamyltransferase increased [Unknown]
  - Mitochondrial aspartate aminotransferase increased [Unknown]
